FAERS Safety Report 5623616-3 (Version None)
Quarter: 2008Q1

REPORT INFORMATION
  Report Type: 
  Country: None (occurrence: None)
  Receive Date: 20080129
  Receipt Date: 20070806
  Transmission Date: 20080703
  Serious: Yes (Hospitalization)
  Sender: FDA-Public Use
  Company Number: WAES 0708USA01456

PATIENT
  Age: 82 Year
  Sex: Female

DRUGS (1)
  1. INVANZ [Suspect]
     Dosage: 1 GM

REACTIONS (1)
  - CONVULSION [None]
